FAERS Safety Report 17896673 (Version 1)
Quarter: 2020Q2

REPORT INFORMATION
  Report Type: Spontaneous
  Country: FR (occurrence: FR)
  Receive Date: 20200615
  Receipt Date: 20200615
  Transmission Date: 20200714
  Serious: No
  Sender: FDA-Public Use
  Company Number: FR-ELI_LILLY_AND_COMPANY-FR202006005171

PATIENT
  Age: 21 Year
  Sex: Female

DRUGS (6)
  1. LOXAPAC [LOXAPINE] [Suspect]
     Active Substance: LOXAPINE
     Indication: MENTAL DISORDER
     Dosage: UNK UNK, UNKNOWN
     Route: 048
  2. THERALENE [Concomitant]
     Active Substance: TRIMEPRAZINE
     Indication: MENTAL DISORDER
     Route: 048
  3. PAROXETINE CF [Concomitant]
     Indication: MENTAL DISORDER
     Route: 048
  4. OLANZAPINE. [Suspect]
     Active Substance: OLANZAPINE
     Indication: MENTAL DISORDER
     Dosage: UNK UNK, UNKNOWN
     Route: 048
  5. TEMESTA EXPIDET [Concomitant]
     Active Substance: LORAZEPAM
     Indication: MENTAL DISORDER
     Route: 048
  6. CLOZAPINE. [Suspect]
     Active Substance: CLOZAPINE
     Indication: MENTAL DISORDER
     Dosage: UNK, UNKNOWN
     Route: 048
     Dates: start: 202001

REACTIONS (1)
  - Neutropenia [Recovered/Resolved]

NARRATIVE: CASE EVENT DATE: 20200513
